FAERS Safety Report 6182082-2 (Version None)
Quarter: 2009Q2

REPORT INFORMATION
  Report Type: 
  Country: None (occurrence: None)
  Receive Date: 20090507
  Receipt Date: 20090424
  Transmission Date: 20091009
  Serious: Yes (Other)
  Sender: FDA-Public Use
  Company Number: KR-PFIZER INC-2009204466

PATIENT

DRUGS (1)
  1. DEPO-MEDROL [Suspect]
     Indication: MUSCULOSKELETAL PAIN
     Dosage: 280 MG, UNK
     Route: 030
     Dates: start: 20090423

REACTIONS (4)
  - HEADACHE [None]
  - HYPERTENSION [None]
  - LOSS OF CONSCIOUSNESS [None]
  - SHOCK [None]
